FAERS Safety Report 9160330 (Version 1)
Quarter: 2013Q1

REPORT INFORMATION
  Report Type: Spontaneous
  Country: JP (occurrence: JP)
  Receive Date: 20130313
  Receipt Date: 20130313
  Transmission Date: 20140127
  Serious: Yes (Death, Other)
  Sender: FDA-Public Use
  Company Number: JP-GENZYME-THYM-1003693

PATIENT
  Age: 14 Year
  Sex: Male

DRUGS (13)
  1. THYMOGLOBULINE [Suspect]
     Indication: BONE MARROW CONDITIONING REGIMEN
     Dosage: 2.4 MG/KG, QD
     Route: 065
  2. THYMOGLOBULINE [Suspect]
     Dosage: 1.6 MG/KG, QD
     Route: 065
  3. FLUDARA [Suspect]
     Indication: BONE MARROW CONDITIONING REGIMEN
     Dosage: 30 MG/M2, UNK
     Route: 065
  4. FLUDARA [Suspect]
     Dosage: 30 MG/M2, UNK
     Route: 065
  5. MELPHALAN [Concomitant]
     Indication: BONE MARROW CONDITIONING REGIMEN
     Dosage: 40 MG/M2, UNK
     Route: 065
  6. MELPHALAN [Concomitant]
     Dosage: 40 MG/M2, UNK
     Route: 065
  7. TOTAL BODY IRRADIATION [Concomitant]
     Indication: BONE MARROW CONDITIONING REGIMEN
     Dosage: 2 GY, UNK
     Route: 065
  8. TOTAL BODY IRRADIATION [Concomitant]
     Dosage: 3 GY, UNK
     Route: 065
  9. IFOSAMIDE [Concomitant]
     Indication: CHEMOTHERAPY
     Dosage: UNK
     Route: 065
  10. TACROLIMUS [Concomitant]
     Indication: PROPHYLAXIS AGAINST GRAFT VERSUS HOST DISEASE
     Dosage: UNK
     Route: 065
  11. METHOTREXATE [Concomitant]
     Indication: PROPHYLAXIS AGAINST GRAFT VERSUS HOST DISEASE
     Dosage: UNK
     Route: 065
  12. METHYLPREDNISOLONE [Concomitant]
     Indication: MACROPHAGE ACTIVATION
     Dosage: 30 MG/KG, UNK
     Route: 065
  13. ETOPOSIDE [Concomitant]
     Indication: MACROPHAGE ACTIVATION
     Dosage: 50 MG/M2, UNK
     Route: 065

REACTIONS (2)
  - Acute respiratory distress syndrome [Fatal]
  - Fungal sepsis [Unknown]
